FAERS Safety Report 7389760-8 (Version None)
Quarter: 2011Q2

REPORT INFORMATION
  Report Type: 
  Country: None (occurrence: None)
  Receive Date: 20110401
  Receipt Date: 20110323
  Transmission Date: 20111010
  Serious: Yes (Other)
  Sender: FDA-Public Use
  Company Number: US-PFIZER INC-2011006543

PATIENT
  Age: 19 Year
  Sex: Male
  Weight: 71.1 kg

DRUGS (7)
  1. BACTRIM [Concomitant]
  2. ETHOSUXIMIDE [Concomitant]
  3. XANAX [Concomitant]
  4. SODIUM SULFACETAMIDE/SULFUR [Concomitant]
  5. VICODIN [Concomitant]
  6. CELEXA [Concomitant]
  7. TEMSIROLIMUS [Suspect]
     Indication: BONE NEOPLASM MALIGNANT
     Dosage: 25 MG OVER 30 MINUTES WEEKLY, EVERY 42 DAYS (6 WEEKS)
     Route: 042
     Dates: start: 20101018, end: 20101213

REACTIONS (1)
  - PERIORBITAL HAEMATOMA [None]
